FAERS Safety Report 5259550-0 (Version None)
Quarter: 2007Q1

REPORT INFORMATION
  Report Type: 
  Country: None (occurrence: None)
  Receive Date: 20061117
  Receipt Date: 20060901
  Transmission Date: 20070707
  Serious: Yes (Other)
  Sender: FDA-Public Use
  Company Number: US-JNJFOC-20060606706

PATIENT
  Sex: Female

DRUGS (3)
  1. LEVAQUIN [Suspect]
     Indication: URINARY TRACT INFECTION
     Dates: start: 20060401, end: 20060401
  2. SIROLIMUS (SIROLIMUS) UNSPECIFIED [Concomitant]
  3. PREDNISONE (PREDNISONE) UNSPECIFIED [Concomitant]

REACTIONS (4)
  - OEDEMA PERIPHERAL [None]
  - PYREXIA [None]
  - RASH [None]
  - SKIN EXFOLIATION [None]
